FAERS Safety Report 14241188 (Version 3)
Quarter: 2017Q4

REPORT INFORMATION
  Report Type: Spontaneous
  Country: US (occurrence: US)
  Receive Date: 20171130
  Receipt Date: 20171228
  Transmission Date: 20180321
  Serious: Yes (Hospitalization, Other)
  Sender: FDA-Public Use
  Company Number: US-JAZZ-2017-US-015671

PATIENT
  Sex: Female

DRUGS (8)
  1. BUPIVACAINE. [Suspect]
     Active Substance: BUPIVACAINE
     Indication: PRODUCT USED FOR UNKNOWN INDICATION
     Dosage: 0.279 MG, QH
     Route: 037
     Dates: start: 20150409
  2. SUFENTA [Suspect]
     Active Substance: SUFENTANIL CITRATE
     Indication: PRODUCT USED FOR UNKNOWN INDICATION
     Dosage: 5.58 ?G, QH
     Route: 037
     Dates: start: 20150409
  3. BACLOFEN. [Suspect]
     Active Substance: BACLOFEN
     Dosage: UNKNOWN DOSE
     Route: 037
     Dates: start: 20150507
  4. PRIALT [Suspect]
     Active Substance: ZICONOTIDE ACETATE
     Dosage: 5.2 ?G/ML; UNKNOWN DOSE
     Route: 037
     Dates: start: 20150507
  5. BUPIVACAINE. [Suspect]
     Active Substance: BUPIVACAINE
     Dosage: UNKNOWN DOSE
     Route: 037
     Dates: start: 20150507
  6. SUFENTA [Suspect]
     Active Substance: SUFENTANIL CITRATE
     Dosage: UNKNOWN DOSE
     Route: 037
     Dates: start: 20150507
  7. BACLOFEN. [Suspect]
     Active Substance: BACLOFEN
     Indication: PRODUCT USED FOR UNKNOWN INDICATION
     Dosage: 39.08 ?G, QH
     Route: 037
     Dates: start: 20150409
  8. PRIALT [Suspect]
     Active Substance: ZICONOTIDE ACETATE
     Indication: PRODUCT USED FOR UNKNOWN INDICATION
     Dosage: 0.084 ?G, QH
     Route: 037
     Dates: start: 20150409

REACTIONS (4)
  - Scar [Not Recovered/Not Resolved]
  - Granuloma [Not Recovered/Not Resolved]
  - Arachnoid cyst [Not Recovered/Not Resolved]
  - Implant site extravasation [Recovered/Resolved]
